FAERS Safety Report 4379562-9 (Version None)
Quarter: 2004Q2

REPORT INFORMATION
  Report Type: 
  Country: None (occurrence: None)
  Receive Date: 20040614
  Receipt Date: 20040602
  Transmission Date: 20050107
  Serious: No
  Sender: FDA-Public Use
  Company Number: 163-20785-03100682

PATIENT
  Age: 14 Year
  Sex: Male
  Weight: 75.8 kg

DRUGS (5)
  1. THALOMID [Suspect]
     Indication: HUTCHINSON'S SUMMER PRURIGO
     Dosage: 100 MG, DAILY, ORAL
     Route: 048
     Dates: start: 20030814, end: 20031029
  2. ZYRTEC [Concomitant]
  3. ALBUTEROL [Concomitant]
  4. PULMICORT [Concomitant]
  5. NEXIUM [Concomitant]

REACTIONS (4)
  - BENIGN INTRACRANIAL HYPERTENSION [None]
  - HEADACHE [None]
  - INTRACRANIAL PRESSURE INCREASED [None]
  - PAPILLOEDEMA [None]
